FAERS Safety Report 19367118 (Version 7)
Quarter: 2021Q3

REPORT INFORMATION
  Report Type: Report from Study
  Country: NL (occurrence: NL)
  Receive Date: 20210603
  Receipt Date: 20210924
  Transmission Date: 20211014
  Serious: Yes (Hospitalization, Other)
  Sender: FDA-Public Use
  Company Number: NL-MYLANLABS-2021M1030881

PATIENT
  Age: 66 Year
  Sex: Male
  Weight: 75.7 kg

DRUGS (80)
  1. DEXAMETHASONE. [Suspect]
     Active Substance: DEXAMETHASONE
     Dosage: 10 MILLIGRAM, BID
     Route: 042
     Dates: start: 20200924, end: 20201001
  2. VORICONAZOLE. [Concomitant]
     Active Substance: VORICONAZOLE
     Dosage: 200 MG, BID
     Route: 048
     Dates: start: 20200825, end: 20200910
  3. LACTULOSE. [Concomitant]
     Active Substance: LACTULOSE
     Dosage: 10 GRAM, BID (10 G, BID)
     Route: 048
     Dates: start: 20200915, end: 20200917
  4. RASBURICASE [Concomitant]
     Active Substance: RASBURICASE
     Dosage: 3 MILLIGRAM, QD (3 MG, QD)
     Route: 042
     Dates: start: 20200915, end: 20200916
  5. METOCLOPRAMIDE. [Concomitant]
     Active Substance: METOCLOPRAMIDE
     Indication: VOMITING
     Dosage: 10 MG, BID OR PRN
     Route: 042
     Dates: start: 20200916, end: 20200924
  6. FENTANYL. [Concomitant]
     Active Substance: FENTANYL
     Dosage: 100 MILLIGRAM, Q8H
     Route: 060
     Dates: start: 20201207, end: 20210104
  7. NORADRENALIN                       /00127501/ [Concomitant]
     Active Substance: NOREPINEPHRINE\NOREPINEPHRINE BITARTRATE
     Dosage: 0.2 UG/KG /MIN, CONTINIOUS
     Route: 042
     Dates: start: 20201009, end: 20201010
  8. IBRUTINIB [Concomitant]
     Active Substance: IBRUTINIB
     Dosage: 140 MG, QD
     Route: 048
     Dates: start: 20200819, end: 20200826
  9. DEXAMETHASONE. [Suspect]
     Active Substance: DEXAMETHASONE
     Dosage: 10 MILLIGRAM, BID
     Route: 048
     Dates: start: 20201009, end: 20201012
  10. DEXAMETHASONE. [Suspect]
     Active Substance: DEXAMETHASONE
     Dosage: 10 MILLIGRAM, QD
     Route: 048
     Dates: start: 20201013, end: 20201016
  11. TEMAZEPAM. [Concomitant]
     Active Substance: TEMAZEPAM
     Dosage: 10 MG, ONCE
     Route: 048
     Dates: start: 20200914, end: 20200914
  12. VORICONAZOLE. [Concomitant]
     Active Substance: VORICONAZOLE
     Dosage: 400 MG, QD
     Route: 048
     Dates: start: 20201120, end: 20201121
  13. PARACETAMOL [Concomitant]
     Active Substance: ACETAMINOPHEN
     Dosage: 500 MG, Q4HR
     Route: 042
     Dates: start: 20200916, end: 20200921
  14. PARACETAMOL [Concomitant]
     Active Substance: ACETAMINOPHEN
     Dosage: 1000 MG, PRN
     Route: 048
     Dates: start: 20210330
  15. PARACETAMOL [Concomitant]
     Active Substance: ACETAMINOPHEN
     Dosage: 1000 MILLIGRAM, Q8H (1000 MG, TID   )
     Dates: start: 20201011, end: 20201027
  16. CARBOPLATIN. [Concomitant]
     Active Substance: CARBOPLATIN
     Dosage: UNK
  17. METOCLOPRAMIDE. [Concomitant]
     Active Substance: METOCLOPRAMIDE
     Dosage: 10 MG, ONCE
     Route: 042
     Dates: start: 20201221, end: 20201221
  18. IBRUTINIB [Concomitant]
     Active Substance: IBRUTINIB
     Dosage: 140 MG, QD
     Route: 048
     Dates: start: 20200825, end: 20200915
  19. PARACETAMOL [Concomitant]
     Active Substance: ACETAMINOPHEN
     Dosage: 100 MILLIGRAM
     Route: 042
     Dates: start: 20200916, end: 20200917
  20. PARACETAMOL [Concomitant]
     Active Substance: ACETAMINOPHEN
     Dosage: 1000 MG, BID
     Route: 048
     Dates: start: 20200801, end: 20200817
  21. PARACETAMOL [Concomitant]
     Active Substance: ACETAMINOPHEN
     Dosage: 1000 MILLIGRAM, TOTAL (1000 MG, ONCE)
     Route: 048
     Dates: start: 20210329, end: 20210329
  22. RITUXIMAB. [Concomitant]
     Active Substance: RITUXIMAB
     Dosage: UNK
     Dates: start: 20200714, end: 20200717
  23. LACTULOSE. [Concomitant]
     Active Substance: LACTULOSE
     Indication: CONSTIPATION
     Dosage: 10 GRAM, BID (10 G, BID)
     Route: 048
     Dates: start: 20200826, end: 20200909
  24. FUROSEMIDE. [Concomitant]
     Active Substance: FUROSEMIDE
     Indication: FLUID RETENTION
     Dosage: UNK
     Dates: start: 20200910, end: 20200911
  25. METOCLOPRAMIDE. [Concomitant]
     Active Substance: METOCLOPRAMIDE
     Dosage: 10 MG, PRN
     Route: 042
     Dates: start: 20201113
  26. ANIDULAFUNGIN [Concomitant]
     Active Substance: ANIDULAFUNGIN
     Dosage: 100 MG, QD
     Route: 042
     Dates: start: 20200811, end: 20200908
  27. ANIDULAFUNGIN [Concomitant]
     Active Substance: ANIDULAFUNGIN
     Dosage: 100 MG, QD
     Route: 042
     Dates: start: 20200909, end: 20201010
  28. ESOMEPRAZOLE. [Concomitant]
     Active Substance: ESOMEPRAZOLE MAGNESIUM
     Dosage: 40 MILLIGRAM, BID (40 MG, BID)
     Route: 048
     Dates: start: 20200902, end: 20200911
  29. DEXAMETHASONE. [Suspect]
     Active Substance: DEXAMETHASONE
     Dosage: 10 MILLIGRAM, Q6H
     Route: 048
     Dates: start: 20201001, end: 20201008
  30. CYCLOPHOSPHAMIDE. [Suspect]
     Active Substance: CYCLOPHOSPHAMIDE
     Indication: PRODUCT USED FOR UNKNOWN INDICATION
     Dosage: 1040 MILLIGRAM, QD (1040 MG, QD)
     Route: 042
     Dates: start: 20200911, end: 20200912
  31. VORICONAZOLE. [Concomitant]
     Active Substance: VORICONAZOLE
     Dosage: 338.8 MG, BID
     Route: 042
     Dates: start: 20200811, end: 20200819
  32. FUROSEMIDE. [Concomitant]
     Active Substance: FUROSEMIDE
     Dosage: 20 MG, BID
     Dates: start: 20200920, end: 20200921
  33. FENTANYL. [Concomitant]
     Active Substance: FENTANYL
     Dosage: 100 MICROGRAM, TOTAL (100 UG, ONCE, PRN)
     Route: 060
     Dates: start: 20201022, end: 20201022
  34. COTRIMOXAZOL [Concomitant]
     Active Substance: SULFAMETHOXAZOLE\TRIMETHOPRIM
     Dosage: 480 MG, QD
     Route: 048
     Dates: start: 20200915
  35. COTRIMOXAZOL [Concomitant]
     Active Substance: SULFAMETHOXAZOLE\TRIMETHOPRIM
     Dosage: 480 MILLIGRAM, QD
     Route: 048
     Dates: start: 20210330, end: 20210331
  36. IBRUTINIB [Concomitant]
     Active Substance: IBRUTINIB
     Dosage: 560 MG, QD
     Route: 048
     Dates: start: 20200813, end: 20200818
  37. AXICABTAGENE CILOLEUCEL [Suspect]
     Active Substance: AXICABTAGENE CILOLEUCEL
     Indication: MANTLE CELL LYMPHOMA
     Dosage: UNK
     Route: 042
     Dates: start: 20200915, end: 20200915
  38. MESNA. [Suspect]
     Active Substance: MESNA
     Dosage: 400 MILLIGRAM, Q8H
     Route: 042
     Dates: start: 20200912, end: 20200912
  39. MOVICOLON [Concomitant]
     Active Substance: POLYETHYLENE GLYCOL 3350\POTASSIUM CHLORIDE\SODIUM BICARBONATE\SODIUM CHLORIDE
     Dosage: 13.8 MILLIGRAM, BID (13.8 MG, BID)
     Route: 048
     Dates: start: 20201009, end: 20201010
  40. ONDANSETRON [Concomitant]
     Active Substance: ONDANSETRON
     Indication: VOMITING
     Dosage: 8 MG, BID
     Dates: start: 20200917, end: 20200917
  41. ONDANSETRON [Concomitant]
     Active Substance: ONDANSETRON
     Dosage: 8 MG, BID
     Dates: start: 20200910, end: 20200915
  42. ANIDULAFUNGIN [Concomitant]
     Active Substance: ANIDULAFUNGIN
     Dosage: 200 MG ONCE
     Route: 042
     Dates: start: 20200902, end: 20200902
  43. PLATELETS [Concomitant]
     Active Substance: HUMAN PLATELET, ALLOGENIC
     Indication: PLATELET COUNT DECREASED
     Dosage: UNK
     Dates: start: 20200909, end: 20200909
  44. ESOMEPRAZOLE. [Concomitant]
     Active Substance: ESOMEPRAZOLE MAGNESIUM
     Dosage: 40 MILLIGRAM, QD (40 MG, QD)
     Route: 048
     Dates: start: 20200912
  45. ESOMEPRAZOLE. [Concomitant]
     Active Substance: ESOMEPRAZOLE MAGNESIUM
     Dosage: 40 MILLIGRAM, QD (40 MILLIGRAM, QD)
     Route: 048
     Dates: start: 20210330, end: 20210331
  46. PSYLLIUM                           /05655301/ [Concomitant]
     Dosage: 3.4 GRAM, PRN (3.4 G, PRN)
     Route: 048
     Dates: start: 20210409
  47. CARBOPLATIN W/CYTARABINE/DEXAMETHASONE/RITUXI [Concomitant]
     Dosage: UNK
     Dates: start: 20200714, end: 20200717
  48. PARACETAMOL [Concomitant]
     Active Substance: ACETAMINOPHEN
     Dosage: 1000 MILLIGRAM, Q8H (1000 MG, TID)
     Route: 042
     Dates: start: 20201009, end: 20201009
  49. FLUDARABINE [Suspect]
     Active Substance: FLUDARABINE PHOSPHATE
     Indication: PRODUCT USED FOR UNKNOWN INDICATION
     Dosage: 30 MILLIGRAM, TOTAL, ONCE
     Route: 042
     Dates: start: 20200910, end: 20200910
  50. FLUDARABINE [Suspect]
     Active Substance: FLUDARABINE PHOSPHATE
     Dosage: 30 MILLIGRAM, TOTAL, ONCE
     Route: 042
     Dates: start: 20200912, end: 20200912
  51. MESNA. [Suspect]
     Active Substance: MESNA
     Dosage: 1600 MILLIGRAM, BID
     Route: 048
     Dates: start: 20201106, end: 20201108
  52. PARACETAMOL [Concomitant]
     Active Substance: ACETAMINOPHEN
     Dosage: 1000 MG, ONCE
     Route: 048
     Dates: start: 20200922, end: 20200922
  53. CYTARABINE. [Concomitant]
     Active Substance: CYTARABINE
     Dosage: UNK
  54. METOCLOPRAMIDE. [Concomitant]
     Active Substance: METOCLOPRAMIDE
     Dosage: 10 MG, UNK
     Route: 042
     Dates: start: 20200911, end: 20200911
  55. ESOMEPRAZOLE. [Concomitant]
     Active Substance: ESOMEPRAZOLE MAGNESIUM
     Dosage: 40 MILLIGRAM, BID (40 MG, BID)
     Route: 048
     Dates: start: 20200819, end: 20200819
  56. VALACICLOVIR [Concomitant]
     Active Substance: VALACYCLOVIR HYDROCHLORIDE
     Dosage: 500 MILLIGRAM, BID (500 MG, BID)
     Route: 048
     Dates: start: 20200825, end: 20200910
  57. DEXAMETHASONE. [Suspect]
     Active Substance: DEXAMETHASONE
     Indication: PRODUCT USED FOR UNKNOWN INDICATION
     Dosage: 40 MILLIGRAM, QD
     Route: 048
     Dates: start: 20200902, end: 20200904
  58. CYCLOPHOSPHAMIDE. [Suspect]
     Active Substance: CYCLOPHOSPHAMIDE
     Dosage: 300 MILLIGRAM, TOTAL (300 MG; 6 X 50)
     Route: 048
     Dates: start: 20201106, end: 20201106
  59. MESNA. [Suspect]
     Active Substance: MESNA
     Indication: ACCIDENTAL EXPOSURE TO PRODUCT
     Dosage: 400 MILLIGRAM, Q8H
     Route: 042
     Dates: start: 20200910, end: 20200910
  60. TEMAZEPAM. [Concomitant]
     Active Substance: TEMAZEPAM
     Dosage: 10 MG, BID
     Route: 048
     Dates: start: 20200918, end: 20200924
  61. HYPROMELLOSE [Concomitant]
     Active Substance: HYPROMELLOSES
     Indication: LACRIMATION INCREASED
     Dosage: UNK
  62. PARACETAMOL [Concomitant]
     Active Substance: ACETAMINOPHEN
     Dosage: 500 MG, Q4HR OR PRN
     Route: 048
     Dates: start: 20200921, end: 20200923
  63. METOCLOPRAMIDE. [Concomitant]
     Active Substance: METOCLOPRAMIDE
     Dosage: 10 MG, BID
     Route: 048
     Dates: start: 20201009, end: 20201010
  64. FENTANYL. [Concomitant]
     Active Substance: FENTANYL
     Dosage: 12 MICROGRAM, QH (12 UG Q1HR)
     Route: 062
     Dates: start: 20200813, end: 20200817
  65. PSYLLIUM                           /05655301/ [Concomitant]
     Indication: CONSTIPATION
     Dosage: 3.4 GRAM, TID (3.4 G, TID)
     Route: 048
     Dates: start: 20200804, end: 20200908
  66. CLEMASTINE [Concomitant]
     Active Substance: CLEMASTINE
     Dosage: 2 MILLIGRAM, TOTAL (2 MG, ONCE)
     Route: 042
     Dates: start: 20200915, end: 20200915
  67. DEXAMETHASONE. [Suspect]
     Active Substance: DEXAMETHASONE
     Dosage: 10 MILLIGRAM, QD
     Route: 042
     Dates: start: 20200922, end: 20200923
  68. DEXAMETHASONE. [Suspect]
     Active Substance: DEXAMETHASONE
     Dosage: 7.5 MILLIGRAM, QD
     Route: 048
     Dates: start: 20201017, end: 20201019
  69. TEMAZEPAM. [Concomitant]
     Active Substance: TEMAZEPAM
     Dosage: 10 MG, ONCE
     Route: 048
     Dates: start: 20200918, end: 20200918
  70. VORICONAZOLE. [Concomitant]
     Active Substance: VORICONAZOLE
     Dosage: 200 MG, BID
     Route: 042
     Dates: start: 20200819, end: 20200820
  71. VORICONAZOLE. [Concomitant]
     Active Substance: VORICONAZOLE
     Dosage: 200 MG, BID
     Route: 048
     Dates: start: 20200909, end: 20201010
  72. VORICONAZOLE. [Concomitant]
     Active Substance: VORICONAZOLE
     Dosage: 500 MILLIGRAM, BID (500 MG, BID )
     Route: 048
  73. PARACETAMOL [Concomitant]
     Active Substance: ACETAMINOPHEN
     Dosage: 1000 MG, ONCE
     Route: 048
     Dates: start: 20200915, end: 20200915
  74. PARACETAMOL [Concomitant]
     Active Substance: ACETAMINOPHEN
     Dosage: 1000 MG, QID OR AS NEEDED
     Route: 048
     Dates: start: 20201009, end: 20201011
  75. PARACETAMOL [Concomitant]
     Active Substance: ACETAMINOPHEN
     Dosage: 1000 MG, BID
     Route: 048
     Dates: start: 20201008, end: 20201008
  76. MOVICOLON [Concomitant]
     Active Substance: POLYETHYLENE GLYCOL 3350\POTASSIUM CHLORIDE\SODIUM BICARBONATE\SODIUM CHLORIDE
     Dosage: 13.8 GRAM, PRN (13.8 G, PRN)
     Route: 048
     Dates: start: 20200921
  77. FUROSEMIDE. [Concomitant]
     Active Substance: FUROSEMIDE
     Dosage: 20 MG, ONCE
     Route: 042
     Dates: start: 20200912, end: 20200912
  78. METOCLOPRAMIDE. [Concomitant]
     Active Substance: METOCLOPRAMIDE
     Dosage: 10 MG, PRN
     Route: 048
     Dates: start: 20210331, end: 20210331
  79. FENTANYL. [Concomitant]
     Active Substance: FENTANYL
     Dosage: 100 UG, ONCE
     Route: 060
     Dates: start: 20201009, end: 20201009
  80. PARACETAMOL [Concomitant]
     Active Substance: ACETAMINOPHEN
     Dosage: 1000 MILLIGRAM, Q8H (1000 MG, TID)
     Route: 042
     Dates: start: 20201011, end: 20201128

REACTIONS (18)
  - Confusional state [Not Recovered/Not Resolved]
  - Tremor [Recovered/Resolved]
  - Pyrexia [Recovered/Resolved]
  - C-reactive protein increased [Not Recovered/Not Resolved]
  - Fluid retention [Recovered/Resolved]
  - Accidental exposure to product [Recovered/Resolved]
  - Abnormal faeces [Not Recovered/Not Resolved]
  - Infection [Unknown]
  - Neutropenic sepsis [Recovered/Resolved]
  - Balance disorder [Recovered/Resolved]
  - Fall [Recovered/Resolved]
  - Haemophagocytic lymphohistiocytosis [Recovering/Resolving]
  - Cytokine release syndrome [Recovered/Resolved]
  - Nausea [Recovered/Resolved]
  - Aphasia [Recovered/Resolved]
  - Delirium [Not Recovered/Not Resolved]
  - Cough [Not Recovered/Not Resolved]
  - Vomiting [Not Recovered/Not Resolved]

NARRATIVE: CASE EVENT DATE: 20200907
